FAERS Safety Report 18409652 (Version 1)
Quarter: 2020Q4

REPORT INFORMATION
  Report Type: Spontaneous
  Country: US (occurrence: US)
  Receive Date: 20201021
  Receipt Date: 20201021
  Transmission Date: 20210114
  Serious: Yes (Hospitalization, Other)
  Sender: FDA-Public Use
  Company Number: None

PATIENT
  Age: 31 Year
  Sex: Female

DRUGS (6)
  1. PRENATAL [Concomitant]
     Active Substance: VITAMINS
  2. ESTRADIOL. [Concomitant]
     Active Substance: ESTRADIOL
  3. GONAL-F RFF [Concomitant]
     Active Substance: FOLLITROPIN
  4. HCG LO DOSE [Concomitant]
  5. PROGESTERONE 50MG/ML MDV 10ML [Suspect]
     Active Substance: PROGESTERONE
     Indication: INFERTILITY FEMALE
     Route: 058
     Dates: start: 20200605
  6. LEUPROLIDE [Concomitant]
     Active Substance: LEUPROLIDE

REACTIONS (2)
  - Exposure during pregnancy [None]
  - Abortion spontaneous [None]

NARRATIVE: CASE EVENT DATE: 20200824
